FAERS Safety Report 11057368 (Version 3)
Quarter: 2015Q3

REPORT INFORMATION
  Report Type: Spontaneous
  Country: US (occurrence: US)
  Receive Date: 20150422
  Receipt Date: 20150908
  Transmission Date: 20151125
  Serious: Yes (Hospitalization)
  Sender: FDA-Public Use
  Company Number: US-BAYER-2015-161363

PATIENT
  Age: 22 Year
  Sex: Female
  Weight: 86.17 kg

DRUGS (2)
  1. MIRENA [Suspect]
     Active Substance: LEVONORGESTREL
     Indication: CONTRACEPTION
     Dosage: 20 MCG/24HR, CONT
     Route: 015
     Dates: start: 20080519, end: 20130412
  2. MIRENA [Suspect]
     Active Substance: LEVONORGESTREL
     Indication: CONTRACEPTION
     Dosage: 20 MCG/24HR, CONT
     Route: 015
     Dates: start: 20080414, end: 20130412

REACTIONS (9)
  - Device issue [None]
  - Post procedural discomfort [None]
  - Attention deficit/hyperactivity disorder [None]
  - Uterine perforation [None]
  - Pain [None]
  - Device use error [None]
  - Injury [None]
  - Infection [None]
  - Depression [None]

NARRATIVE: CASE EVENT DATE: 20080414
